FAERS Safety Report 25146918 (Version 3)
Quarter: 2025Q2

REPORT INFORMATION
  Report Type: Spontaneous
  Country: US (occurrence: US)
  Receive Date: 20250401
  Receipt Date: 20250618
  Transmission Date: 20250717
  Serious: Yes (Hospitalization)
  Sender: SANOFI AVENTIS
  Company Number: US-SA-2025SA092687

PATIENT
  Age: 86 Year
  Sex: Male
  Weight: 100.5 kg

DRUGS (43)
  1. DUPIXENT [Suspect]
     Active Substance: DUPILUMAB
     Indication: Asthma
     Dosage: 300 MG, QOW
     Route: 058
  2. GAMUNEX-C [Concomitant]
     Active Substance: HUMAN IMMUNOGLOBULIN G
  3. SODIUM CHLORIDE [Concomitant]
     Active Substance: SODIUM CHLORIDE
  4. VITAMIN D3 [Concomitant]
     Active Substance: CHOLECALCIFEROL
  5. VITAMIN B12 [Concomitant]
     Active Substance: CYANOCOBALAMIN
  6. FAMOTIDINE [Concomitant]
     Active Substance: FAMOTIDINE
  7. EZETIMIBE [Concomitant]
     Active Substance: EZETIMIBE
  8. TORSEMIDE [Concomitant]
     Active Substance: TORSEMIDE
  9. MONTELUKAST [Concomitant]
     Active Substance: MONTELUKAST
  10. METOPROLOL SUCCINATE [Concomitant]
     Active Substance: METOPROLOL SUCCINATE
  11. RANOLAZINE [Concomitant]
     Active Substance: RANOLAZINE
  12. PROLIA [Concomitant]
     Active Substance: DENOSUMAB
  13. PROAIR RESPICLICK [Concomitant]
     Active Substance: ALBUTEROL SULFATE
  14. OXYGEN [Concomitant]
     Active Substance: OXYGEN
  15. NITROGLYCERIN [Concomitant]
     Active Substance: NITROGLYCERIN
  16. MOVE FREE JOINT HEALTH [Concomitant]
  17. ISOSORBIDE MONONITRATE [Concomitant]
     Active Substance: ISOSORBIDE MONONITRATE
  18. CRESTOR [Concomitant]
     Active Substance: ROSUVASTATIN CALCIUM
  19. FIBERCON [Concomitant]
     Active Substance: CALCIUM POLYCARBOPHIL
  20. VALSARTAN [Concomitant]
     Active Substance: VALSARTAN
  21. XANAX [Concomitant]
     Active Substance: ALPRAZOLAM
  22. FLUTICASONE FUROATE\SALMETEROL XINAFOATE [Concomitant]
     Active Substance: FLUTICASONE FUROATE\SALMETEROL XINAFOATE
  23. ASPIRIN [Concomitant]
     Active Substance: ASPIRIN
  24. ACETAMINOPHEN\HYDROCODONE [Concomitant]
     Active Substance: ACETAMINOPHEN\HYDROCODONE
  25. ALBUTEROL SULFATE [Concomitant]
     Active Substance: ALBUTEROL SULFATE
  26. AFRIN [Concomitant]
     Active Substance: OXYMETAZOLINE HYDROCHLORIDE
  27. AZITHROMYCIN [Concomitant]
     Active Substance: AZITHROMYCIN
  28. CAYSTON [Concomitant]
     Active Substance: AZTREONAM
  29. VITAMIN E [Concomitant]
     Active Substance: .ALPHA.-TOCOPHEROL
  30. FISH OIL [Concomitant]
     Active Substance: FISH OIL
  31. PANTOPRAZOLE SODIUM [Concomitant]
     Active Substance: PANTOPRAZOLE SODIUM
  32. VITAMINS NOS [Concomitant]
     Active Substance: VITAMINS
  33. PREDNISONE [Concomitant]
     Active Substance: PREDNISONE
  34. VITAMIN B1 [Concomitant]
     Active Substance: THIAMINE HYDROCHLORIDE
  35. CODEINE\GUAIFENESIN [Concomitant]
     Active Substance: CODEINE\GUAIFENESIN
  36. PROBIOTICS [PROBIOTICS NOS] [Concomitant]
  37. PEPCID AC [Concomitant]
     Active Substance: FAMOTIDINE
  38. COENZYME Q10 [Concomitant]
     Active Substance: DIETARY SUPPLEMENT\UBIDECARENONE
  39. ACYCLOVIR [Concomitant]
     Active Substance: ACYCLOVIR
  40. ALLEGRA HIVES 24HR [Concomitant]
     Active Substance: FEXOFENADINE HYDROCHLORIDE
  41. LEVALBUTEROL HYDROCHLORIDE [Concomitant]
     Active Substance: LEVALBUTEROL HYDROCHLORIDE
  42. KETOCONAZOLE [Concomitant]
     Active Substance: KETOCONAZOLE
  43. OMEPRAZOLE [Concomitant]
     Active Substance: OMEPRAZOLE

REACTIONS (3)
  - Blood potassium increased [Unknown]
  - Polyp [Unknown]
  - Haemorrhage [Unknown]
